FAERS Safety Report 6637374-7 (Version None)
Quarter: 2010Q1

REPORT INFORMATION
  Report Type: 
  Country: None (occurrence: None)
  Receive Date: 20100311
  Receipt Date: 20100226
  Transmission Date: 20100710
  Serious: Yes (Other)
  Sender: FDA-Public Use
  Company Number: 1000011449

PATIENT
  Age: 60 Year
  Sex: Female

DRUGS (4)
  1. MEMANTINE HCL [Suspect]
     Indication: DEMENTIA ALZHEIMER'S TYPE
     Dosage: 40 GTT (40 GTT, 1 IN 1 D),ORAL
     Route: 048
     Dates: start: 20090101
  2. MEMANTINE HCL [Suspect]
     Indication: DEMENTIA ALZHEIMER'S TYPE
     Dosage: 30 GTT (15 GTT, 2 IN 1 D), ORAL
     Route: 048
     Dates: start: 20100122
  3. CALCIMAX-D3 EFFERVESCENT (TABLETS) [Concomitant]
  4. IBANDRONIK ACID [Concomitant]

REACTIONS (5)
  - DELIRIUM [None]
  - DEVICE FAILURE [None]
  - DIARRHOEA HAEMORRHAGIC [None]
  - HALLUCINATION, VISUAL [None]
  - OVERDOSE [None]
